FAERS Safety Report 7814500-5 (Version None)
Quarter: 2011Q4

REPORT INFORMATION
  Report Type: 
  Country: None (occurrence: None)
  Receive Date: 20111014
  Receipt Date: 20111014
  Transmission Date: 20120403
  Serious: Yes (Hospitalization)
  Sender: FDA-Public Use
  Company Number: PHHO2009US08078

PATIENT
  Sex: Female
  Weight: 94 kg

DRUGS (1)
  1. GILENYA [Suspect]
     Indication: RELAPSING-REMITTING MULTIPLE SCLEROSIS
     Dosage: 1.25 MG, UNK
     Route: 048
     Dates: start: 20090316, end: 20090624

REACTIONS (9)
  - SCAR [None]
  - HERPES ZOSTER DISSEMINATED [None]
  - RASH [None]
  - PAIN [None]
  - MULTIPLE SCLEROSIS RELAPSE [None]
  - SCRATCH [None]
  - BLISTER [None]
  - SKIN LESION [None]
  - SPINAL OSTEOARTHRITIS [None]
